FAERS Safety Report 15000182 (Version 1)
Quarter: 2018Q2

REPORT INFORMATION
  Report Type: Spontaneous
  Country: CA (occurrence: US)
  Receive Date: 20180612
  Receipt Date: 20180612
  Transmission Date: 20180711
  Serious: No
  Sender: FDA-Public Use
  Company Number: US-XTTRIUM LABORATORIES, INC-2049278

PATIENT
  Sex: Male
  Weight: 94.09 kg

DRUGS (1)
  1. CHLORHEXIDINE GLUCONATE. [Suspect]
     Active Substance: CHLORHEXIDINE GLUCONATE
     Indication: BACTERIAL INFECTION
     Route: 048
     Dates: start: 20180425

REACTIONS (1)
  - Tongue discolouration [Unknown]

NARRATIVE: CASE EVENT DATE: 20180425
